FAERS Safety Report 5384575-4 (Version None)
Quarter: 2007Q3

REPORT INFORMATION
  Report Type: 
  Country: None (occurrence: None)
  Receive Date: 20070711
  Receipt Date: 20070702
  Transmission Date: 20080115
  Serious: Yes (Hospitalization, Other)
  Sender: FDA-Public Use
  Company Number: US-PFIZER INC-2006132894

PATIENT
  Sex: Male
  Weight: 113.4 kg

DRUGS (3)
  1. CELEBREX [Suspect]
     Indication: PAIN
     Dosage: FREQ:ONCE A DAY
     Route: 048
     Dates: start: 19970101, end: 19980101
  2. CELEBREX [Suspect]
     Indication: ARTHRITIS
  3. VIOXX [Suspect]
     Indication: PAIN
     Route: 048
     Dates: start: 20000601, end: 20011101

REACTIONS (4)
  - ANXIETY [None]
  - CARDIOVASCULAR DISORDER [None]
  - DEPRESSION [None]
  - MYOCARDIAL INFARCTION [None]
